FAERS Safety Report 20642154 (Version 1)
Quarter: 2022Q1

REPORT INFORMATION
  Report Type: Report from Study
  Country: US (occurrence: US)
  Receive Date: 20220328
  Receipt Date: 20220328
  Transmission Date: 20220423
  Serious: Yes (Other)
  Sender: FDA-Public Use
  Company Number: US-GILEAD-2022-0566916

PATIENT
  Age: 60 Year
  Sex: Female

DRUGS (7)
  1. AMBRISENTAN [Suspect]
     Active Substance: AMBRISENTAN
     Indication: Pulmonary arterial hypertension
     Dosage: 5 MG, QD
     Route: 065
     Dates: start: 20211115
  2. AMBRISENTAN [Suspect]
     Active Substance: AMBRISENTAN
     Indication: Pulmonary hypertension
     Dosage: 5 MG, QD
     Route: 065
     Dates: start: 20211118
  3. AMBRISENTAN [Suspect]
     Active Substance: AMBRISENTAN
     Indication: Plasma cell myeloma
  4. REVLIMID [Suspect]
     Active Substance: LENALIDOMIDE
     Indication: Plasma cell myeloma
     Route: 065
     Dates: start: 20190411
  5. REVLIMID [Suspect]
     Active Substance: LENALIDOMIDE
     Dosage: 5 MG, QD
     Route: 065
     Dates: start: 201912
  6. REVLIMID [Suspect]
     Active Substance: LENALIDOMIDE
     Dosage: 5 MG, QD
     Route: 065
     Dates: start: 201608
  7. PAROXETINE [Concomitant]
     Active Substance: PAROXETINE

REACTIONS (8)
  - Hallucination [Unknown]
  - Dyspnoea [Unknown]
  - Eye disorder [Recovering/Resolving]
  - Depression [Unknown]
  - Back pain [Unknown]
  - Headache [Unknown]
  - Visual impairment [Unknown]
  - Product dose omission in error [Unknown]

NARRATIVE: CASE EVENT DATE: 20220110
